FAERS Safety Report 15444915 (Version 1)
Quarter: 2018Q3

REPORT INFORMATION
  Report Type: Spontaneous
  Country: US (occurrence: US)
  Receive Date: 20180928
  Receipt Date: 20180928
  Transmission Date: 20181010
  Serious: No
  Sender: FDA-Public Use
  Company Number: US-AMGEN-USASP2018056613

PATIENT
  Age: 76 Year
  Sex: Female

DRUGS (1)
  1. PROLIA [Suspect]
     Active Substance: DENOSUMAB
     Indication: OSTEOPOROSIS POSTMENOPAUSAL
     Dosage: UNK , Q6MO
     Route: 065

REACTIONS (7)
  - Stomatitis [Unknown]
  - Gingival swelling [Unknown]
  - Arthralgia [Not Recovered/Not Resolved]
  - Gingival pain [Unknown]
  - Mastication disorder [Unknown]
  - Pain in jaw [Unknown]
  - Swelling face [Unknown]

NARRATIVE: CASE EVENT DATE: 2018
